FAERS Safety Report 8985549 (Version 1)
Quarter: 2012Q4

REPORT INFORMATION
  Report Type: 
  Country: GB (occurrence: GB)
  Receive Date: 20121226
  Receipt Date: 20121226
  Transmission Date: 20130627
  Serious: Yes (Other)
  Sender: FDA-Public Use
  Company Number: GB-SANOFI-AVENTIS-2012SA092833

PATIENT
  Age: 40 Year
  Sex: Female
  Weight: 61.8 kg

DRUGS (9)
  1. HYDROXYCHLOROQUINE SULFATE [Suspect]
     Indication: DRUG USE FOR UNKNOWN INDICATION
     Route: 065
     Dates: start: 20121205
  2. CO-CODAMOL [Concomitant]
     Dates: start: 20120917, end: 20120918
  3. IBUPROFEN [Concomitant]
     Dates: start: 20120917, end: 20120918
  4. LANSOPRAZOLE [Concomitant]
     Dates: start: 20120917, end: 20120918
  5. AQUEOUS CREAM [Concomitant]
     Dates: start: 20121023, end: 20121024
  6. EPADERM [Concomitant]
     Dates: start: 20121023, end: 20121024
  7. GAVISCON ADVANCE [Concomitant]
     Dates: start: 20121121, end: 20121122
  8. CHLORPHENAMINE [Concomitant]
     Dates: start: 20121205
  9. HYDROCORTISONE [Concomitant]
     Dates: start: 20121205

REACTIONS (3)
  - Hypoaesthesia oral [Unknown]
  - Urticaria [Not Recovered/Not Resolved]
  - Swelling face [Unknown]
